FAERS Safety Report 21017114 (Version 1)
Quarter: 2022Q2

REPORT INFORMATION
  Report Type: Spontaneous
  Country: US (occurrence: None)
  Receive Date: 20220627
  Receipt Date: 20220627
  Transmission Date: 20220721
  Serious: No
  Sender: FDA-Public Use
  Company Number: None

PATIENT
  Age: 62 Year
  Sex: Male
  Weight: 76 kg

DRUGS (1)
  1. PREGABALIN [Suspect]
     Active Substance: PREGABALIN
     Dosage: FREQUENCY : TWICE A DAY;?
     Route: 048
     Dates: start: 20220127, end: 20220228

REACTIONS (2)
  - Anxiety [None]
  - Therapy cessation [None]

NARRATIVE: CASE EVENT DATE: 20220228
